FAERS Safety Report 20322845 (Version 3)
Quarter: 2022Q1

REPORT INFORMATION
  Report Type: Spontaneous
  Country: CA (occurrence: CA)
  Receive Date: 20220111
  Receipt Date: 20220222
  Transmission Date: 20220423
  Serious: Yes (Hospitalization, Other)
  Sender: FDA-Public Use
  Company Number: CA-ORGANON-O2201CAN000506

PATIENT
  Age: 11 Year
  Sex: Male

DRUGS (78)
  1. SINGULAIR [Suspect]
     Active Substance: MONTELUKAST SODIUM
     Indication: Child abuse
     Dosage: 10.0 MILLIGRAM, 1 EVERY 1 DAYS
     Route: 048
  2. ARIPIPRAZOLE [Suspect]
     Active Substance: ARIPIPRAZOLE
     Indication: Child abuse
     Dosage: 2.0 MILLIGRAM, 1 EVERY 8 HOURS (3 EVERY 1 DAYS)
     Route: 048
  3. ARIPIPRAZOLE [Suspect]
     Active Substance: ARIPIPRAZOLE
     Indication: Product used for unknown indication
  4. BACLOFEN [Suspect]
     Active Substance: BACLOFEN
     Indication: Child abuse
     Dosage: 20.0 MILLIGRAM, 1 EVERY 8 HOURS (3 EVERY 1 DAYS)
     Route: 048
  5. BACLOFEN [Suspect]
     Active Substance: BACLOFEN
     Indication: Product used for unknown indication
  6. BISACODYL [Suspect]
     Active Substance: BISACODYL
     Indication: Child abuse
     Dosage: 5.0 MILLIGRAM, 1 EVERY 1 DAYS (1 EVERY 24 HOURS)
     Route: 048
  7. BISACODYL [Suspect]
     Active Substance: BISACODYL
     Indication: Product used for unknown indication
  8. CELECOXIB [Suspect]
     Active Substance: CELECOXIB
     Indication: Child abuse
     Dosage: 100.0 MILLIGRAM, 1 EVERY 12 HOURS (2 EVERY 1 DAYS)
     Route: 048
  9. CELECOXIB [Suspect]
     Active Substance: CELECOXIB
     Indication: Back pain
  10. CELECOXIB [Suspect]
     Active Substance: CELECOXIB
     Indication: Pain management
  11. CLOBAZAM [Suspect]
     Active Substance: CLOBAZAM
     Indication: Child abuse
     Dosage: 20.0 MILLIGRAM,1 EVERY 12 HOURS (2 EVERY 1 DAYS)
     Route: 048
  12. CLOBAZAM [Suspect]
     Active Substance: CLOBAZAM
     Indication: Product used for unknown indication
     Dosage: UNK
     Route: 065
  13. CLONIDINE [Suspect]
     Active Substance: CLONIDINE
     Indication: Child abuse
     Dosage: UNK
     Route: 048
  14. CLONIDINE [Suspect]
     Active Substance: CLONIDINE
     Indication: Product used for unknown indication
     Dosage: 0.1 MILLIGRAM 1 EVERY 1 DAYS
     Route: 048
  15. CLONIDINE [Suspect]
     Active Substance: CLONIDINE
     Dosage: 0.5 MILLIGRAM 1 EVERY 1 DAYS
     Route: 048
  16. DIMENHYDRINATE [Suspect]
     Active Substance: DIMENHYDRINATE
     Indication: Child abuse
     Dosage: 25.0 MILLIGRAM, 1 EVERY 1 DAYS (1 EVERY 24 HOURS)
     Route: 048
  17. DIMENHYDRINATE [Suspect]
     Active Substance: DIMENHYDRINATE
     Indication: Constipation
     Dosage: 12.5 MILLIGRAM, 1 EVERY 6 HOURS
     Route: 048
  18. DIMENHYDRINATE [Suspect]
     Active Substance: DIMENHYDRINATE
     Dosage: 20 MILLIGRAM, 1 EVERY 1 DAYS
     Route: 048
  19. DIPHENHYDRAMINE [Suspect]
     Active Substance: DIPHENHYDRAMINE
     Indication: Child abuse
     Dosage: 12.5 MILLIGRAM, 1 EVERY 6 HOURS (4 EVERY 1 DAYS)
     Route: 048
  20. DIPHENHYDRAMINE [Suspect]
     Active Substance: DIPHENHYDRAMINE
     Indication: Pruritus
  21. FLUOXETINE [Suspect]
     Active Substance: FLUOXETINE HYDROCHLORIDE
     Indication: Child abuse
     Dosage: 20.0 MILLIGRAM, 1 EVERY 1 DAYS (1 EVERY 24 HOURS)
     Route: 048
  22. FLUOXETINE [Suspect]
     Active Substance: FLUOXETINE HYDROCHLORIDE
     Indication: Product used for unknown indication
  23. FLUTICASONE [Suspect]
     Active Substance: FLUTICASONE
     Indication: Child abuse
     Dosage: 2.0 DOSAGE FORMS, 1 EVERY 1 DAYS
  24. FLUTICASONE [Suspect]
     Active Substance: FLUTICASONE
     Indication: Product used for unknown indication
     Dosage: 1 DOSAGE FORM, 1 EVERY 1 DAYS
  25. FLUTICASONE [Suspect]
     Active Substance: FLUTICASONE
     Dosage: 250 MICROGRAM 1 EVERY 1 DAYS (1 EVERY 24 HOURS)
  26. GABAPENTIN [Suspect]
     Active Substance: GABAPENTIN
     Indication: Child abuse
     Dosage: 600.0 MILLIGRAM, 1 EVERY 8 HOURS (3 EVERY 1 DAYS)
     Route: 048
  27. GABAPENTIN [Suspect]
     Active Substance: GABAPENTIN
     Indication: Back pain
  28. GABAPENTIN [Suspect]
     Active Substance: GABAPENTIN
     Indication: Pain management
  29. HYDROMORPHONE [Suspect]
     Active Substance: HYDROMORPHONE
     Indication: Child abuse
     Dosage: UNK
     Route: 065
  30. HYDROMORPHONE [Suspect]
     Active Substance: HYDROMORPHONE
     Indication: Back pain
  31. HYDROMORPHONE [Suspect]
     Active Substance: HYDROMORPHONE
     Indication: Pain management
  32. HYDROXYCHLOROQUINE [Suspect]
     Active Substance: HYDROXYCHLOROQUINE
     Indication: Child abuse
     Dosage: 400.0 MILLIGRAM, 1 EVERY 1 DAYS (1 EVERY 24 HOURS)
     Route: 048
  33. HYDROXYCHLOROQUINE [Suspect]
     Active Substance: HYDROXYCHLOROQUINE
     Indication: Product used for unknown indication
  34. KETOROLAC [Suspect]
     Active Substance: KETOROLAC TROMETHAMINE
     Indication: Child abuse
     Dosage: 20.0 MILLIGRAM, 1 EVERY 6 HOURS (4 EVERY 1 DAYS)
     Route: 048
  35. KETOROLAC [Suspect]
     Active Substance: KETOROLAC TROMETHAMINE
     Indication: Pain
  36. LEUPROLIDE ACETATE [Suspect]
     Active Substance: LEUPROLIDE ACETATE
     Indication: Child abuse
     Dosage: 7.5 MILLIGRAM, 1 EVERY 1 MONTH (1 EVERY 30 DAYS)
     Route: 030
  37. LEUPROLIDE ACETATE [Suspect]
     Active Substance: LEUPROLIDE ACETATE
     Indication: Product used for unknown indication
  38. LORAZEPAM [Suspect]
     Active Substance: LORAZEPAM
     Indication: Child abuse
     Dosage: UNK
     Route: 060
  39. LORAZEPAM [Suspect]
     Active Substance: LORAZEPAM
     Indication: Seizure
     Dosage: 2 MILLIGRAM  1 EVERY 1 DAYS
     Route: 060
  40. LORAZEPAM [Suspect]
     Active Substance: LORAZEPAM
     Indication: Back pain
     Dosage: 0.5 MILLIGRAM 1 EVERY 1 DAYS
     Route: 060
  41. LORAZEPAM [Suspect]
     Active Substance: LORAZEPAM
     Indication: Muscle spasms
  42. LORAZEPAM [Suspect]
     Active Substance: LORAZEPAM
     Indication: Pain management
  43. POLYETHYLENE GLYCOL 3350 [Suspect]
     Active Substance: POLYETHYLENE GLYCOL 3350
     Indication: Child abuse
     Dosage: 30.0 MILLIGRAM, 1 EVERY 12 HOURS (2 EVERY 1 DAYS)
     Route: 048
  44. POLYETHYLENE GLYCOL 3350 [Suspect]
     Active Substance: POLYETHYLENE GLYCOL 3350
     Indication: Product used for unknown indication
  45. MELATONIN [Suspect]
     Active Substance: MELATONIN
     Indication: Child abuse
     Dosage: 10.0 MILLIGRAM, 1 EVERY 1 DAYS
     Route: 048
  46. MELATONIN [Suspect]
     Active Substance: MELATONIN
     Indication: Sleep deficit
  47. MELATONIN [Suspect]
     Active Substance: MELATONIN
     Indication: Sleep disorder
  48. METHADONE [Suspect]
     Active Substance: METHADONE HYDROCHLORIDE
     Indication: Child abuse
     Dosage: 2.0 MILLIGRAM, 1 EVERY 8 HOURS (3 EVERY 1 DAYS)
     Route: 048
  49. METHADONE [Suspect]
     Active Substance: METHADONE HYDROCHLORIDE
     Indication: Product used for unknown indication
  50. ACETAMINOPHEN\METHOCARBAMOL [Suspect]
     Active Substance: ACETAMINOPHEN\METHOCARBAMOL
     Indication: Child abuse
     Dosage: 2 EVERY 1 DAYS
     Route: 048
  51. ACETAMINOPHEN\METHOCARBAMOL [Suspect]
     Active Substance: ACETAMINOPHEN\METHOCARBAMOL
     Indication: Back pain
     Dosage: 400 MILLIGRAM 1 EVERY 12 HOURS
     Route: 048
  52. ACETAMINOPHEN\METHOCARBAMOL [Suspect]
     Active Substance: ACETAMINOPHEN\METHOCARBAMOL
     Dosage: UNK
     Route: 065
  53. PANTOPRAZOLE [Suspect]
     Active Substance: PANTOPRAZOLE
     Indication: Child abuse
     Dosage: 40.0 MILLIGRAM, 1 EVERY 1 DAYS (1 EVERY 24 HOURS)
     Route: 048
  54. PANTOPRAZOLE [Suspect]
     Active Substance: PANTOPRAZOLE
     Indication: Product used for unknown indication
  55. PHENOBARBITAL [Suspect]
     Active Substance: PHENOBARBITAL
     Indication: Child abuse
     Dosage: 30.0 MILLIGRAM, 1 EVERY 12 HOURS (2 EVERY 1 DAYS)
     Route: 048
  56. PHENOBARBITAL [Suspect]
     Active Substance: PHENOBARBITAL
     Indication: Product used for unknown indication
  57. RANITIDINE [Suspect]
     Active Substance: RANITIDINE
     Indication: Child abuse
     Dosage: 150.0 MILLIGRAM, 1 EVERY 1 DAYS (1 EVERY 24 HOURS)
     Route: 048
  58. RANITIDINE [Suspect]
     Active Substance: RANITIDINE
     Indication: Product used for unknown indication
  59. ALBUTEROL [Suspect]
     Active Substance: ALBUTEROL
     Indication: Child abuse
     Dosage: 2.0 DOSAGE FORMS, 1 EVERY 4 HOURS
  60. ALBUTEROL [Suspect]
     Active Substance: ALBUTEROL
     Indication: Product used for unknown indication
     Dosage: 1 DOSAGE FORM 1 EVERY 4 HOURS
  61. ALBUTEROL [Suspect]
     Active Substance: ALBUTEROL
     Dosage: 100 MILLIGRAM, 1 EVERY 4 HOURS
     Route: 065
  62. VITAMIN C [Suspect]
     Active Substance: ASCORBIC ACID
     Indication: Child abuse
     Dosage: 1500.0 MILLIGRAM, 1 EVERY 1 DAYS (1 EVERY 24 HOURS)
     Route: 048
  63. VITAMIN C [Suspect]
     Active Substance: ASCORBIC ACID
     Indication: Product used for unknown indication
  64. VITAMIN D3 [Suspect]
     Active Substance: CHOLECALCIFEROL
     Indication: Child abuse
     Dosage: 2000.0 IU, 1 EVERY 1 DAYS
     Route: 048
  65. VITAMIN D3 [Suspect]
     Active Substance: CHOLECALCIFEROL
     Indication: Product used for unknown indication
     Dosage: 200 INTERNATIONAL UNIT, 1 EVERY 24 HOURS
  66. CELECOXIB [Suspect]
     Active Substance: CELECOXIB
     Indication: Child abuse
     Dosage: UNK
     Route: 065
  67. CELECOXIB [Suspect]
     Active Substance: CELECOXIB
     Indication: Back pain
  68. DIMENHYDRINATE [Suspect]
     Active Substance: DIMENHYDRINATE
     Indication: Child abuse
     Dosage: 12.5 MILLIGRAM 1 EVERY 6 HOURS
     Route: 048
  69. DIMENHYDRINATE [Suspect]
     Active Substance: DIMENHYDRINATE
     Indication: Constipation
     Dosage: 20 MILLIGRAM, 1 EVERY 1 DAYS
     Route: 048
  70. DOCONEXENT [Suspect]
     Active Substance: DOCONEXENT
     Indication: Product used for unknown indication
     Dosage: UNK
     Route: 065
  71. DULCOLAX (BISACODYL) [Suspect]
     Active Substance: BISACODYL
     Indication: Child abuse
     Dosage: 5 MILLIGRAM
     Route: 048
  72. GABAPENTIN [Suspect]
     Active Substance: GABAPENTIN
     Indication: Child abuse
     Dosage: UNK
     Route: 065
  73. GABAPENTIN [Suspect]
     Active Substance: GABAPENTIN
     Indication: Back pain
  74. MONTELUKAST SODIUM [Suspect]
     Active Substance: MONTELUKAST SODIUM
     Indication: Product used for unknown indication
     Dosage: 10 MILLIGRAM, 1 EVERY 24 HOURS
     Route: 048
  75. METHOCARBAMOL [Suspect]
     Active Substance: METHOCARBAMOL
     Indication: Product used for unknown indication
     Dosage: 2 MILLIGRAM, 3 EVERY 1 DAYS
     Route: 065
  76. OMEGA-3 FATTY ACIDS [Suspect]
     Active Substance: OMEGA-3 FATTY ACIDS
     Indication: Product used for unknown indication
     Dosage: UNK
     Route: 048
  77. ROBAXACET [Suspect]
     Active Substance: ACETAMINOPHEN\METHOCARBAMOL
     Indication: Back pain
     Dosage: 900 MILLIGRAM, 1 EVERY 1 DAY
     Route: 048
  78. FISH OIL [Suspect]
     Active Substance: FISH OIL
     Indication: Product used for unknown indication
     Dosage: 1 EVERY 24 HOURS
     Route: 048

REACTIONS (7)
  - Drug abuse [Recovered/Resolved]
  - Drug dependence [Recovered/Resolved]
  - Drug ineffective [Recovered/Resolved]
  - Intentional product misuse [Recovered/Resolved]
  - Product prescribing error [Recovered/Resolved]
  - Respiratory depression [Recovered/Resolved]
  - Victim of child abuse [Recovered/Resolved]
